FAERS Safety Report 21266190 (Version 2)
Quarter: 2023Q1

REPORT INFORMATION
  Report Type: Report from Study
  Country: BR (occurrence: BR)
  Receive Date: 20220829
  Receipt Date: 20230105
  Transmission Date: 20230418
  Serious: Yes (Other)
  Sender: FDA-Public Use
  Company Number: BR-NOVARTISPH-NVSC2022BR188173

PATIENT
  Sex: Female

DRUGS (3)
  1. COSENTYX [Suspect]
     Active Substance: SECUKINUMAB
     Indication: Psoriasis
     Dosage: UNK
     Route: 065
  2. COSENTYX [Suspect]
     Active Substance: SECUKINUMAB
     Dosage: UNK
     Route: 065
  3. LOSARTAN [Suspect]
     Active Substance: LOSARTAN
     Indication: Pulse pressure increased
     Dosage: UNK
     Route: 065

REACTIONS (10)
  - Blood pressure increased [Recovering/Resolving]
  - Headache [Unknown]
  - Malaise [Unknown]
  - Neck pain [Unknown]
  - COVID-19 [Recovered/Resolved with Sequelae]
  - Influenza [Unknown]
  - Sneezing [Unknown]
  - Pyrexia [Unknown]
  - Head discomfort [Unknown]
  - Pain [Unknown]

NARRATIVE: CASE EVENT DATE: 20220101
